FAERS Safety Report 25910040 (Version 1)
Quarter: 2025Q4

REPORT INFORMATION
  Report Type: Spontaneous
  Country: TR (occurrence: TR)
  Receive Date: 20251012
  Receipt Date: 20251012
  Transmission Date: 20260117
  Serious: Yes (Hospitalization)
  Sender: IPSEN BIOPHARMACEUTICALS, INC.
  Company Number: TR-IPSEN Group, Research and Development-2025-24996

PATIENT
  Age: 47 Year
  Sex: Male

DRUGS (5)
  1. LANREOTIDE ACETATE [Suspect]
     Active Substance: LANREOTIDE ACETATE
     Indication: Acromegaly
  2. PREGABALIN [Concomitant]
     Active Substance: PREGABALIN
  3. AMITRIPTYLINE [Concomitant]
     Active Substance: AMITRIPTYLINE
  4. AMITRIPTYLINE [Concomitant]
     Active Substance: AMITRIPTYLINE
     Dosage: 25 MG DAILY.
  5. TOPIRAMATE [Concomitant]
     Active Substance: TOPIRAMATE
     Dosage: TWICE DAILY

REACTIONS (7)
  - Surgery [Unknown]
  - Drug ineffective [Unknown]
  - Photophobia [Unknown]
  - Headache [Unknown]
  - Peripheral swelling [Unknown]
  - Asthenia [Unknown]
  - Lethargy [Unknown]
